FAERS Safety Report 21910021 (Version 2)
Quarter: 2023Q1

REPORT INFORMATION
  Report Type: Spontaneous
  Country: IT (occurrence: IT)
  Receive Date: 20230125
  Receipt Date: 20230209
  Transmission Date: 20230418
  Serious: Yes (Other)
  Sender: FDA-Public Use
  Company Number: None

PATIENT
  Age: 54 Year
  Sex: Female

DRUGS (1)
  1. XANAX [Suspect]
     Active Substance: ALPRAZOLAM
     Indication: Product used for unknown indication
     Dosage: 5.5 MG,3 TABLETS OF 1 MG AND 5 TABLET OF 0.5 MG
     Route: 048
     Dates: start: 20221127, end: 20221127

REACTIONS (3)
  - Psychomotor hyperactivity [Recovering/Resolving]
  - Drug abuse [Unknown]
  - Poisoning [Recovering/Resolving]

NARRATIVE: CASE EVENT DATE: 20221127
